FAERS Safety Report 8309395-X (Version None)
Quarter: 2012Q2

REPORT INFORMATION
  Report Type: 
  Country: None (occurrence: None)
  Receive Date: 20120424
  Receipt Date: 20120424
  Transmission Date: 20120825
  Serious: No
  Sender: FDA-Public Use
  Company Number: None

PATIENT
  Age: 70 Year
  Sex: Female
  Weight: 120.2032 kg

DRUGS (1)
  1. SULFAMETHOXAZOLE AND TRIMETHOPRIM DOUBLE STRENGTH [Suspect]
     Indication: URINARY TRACT INFECTION
     Dosage: 1 TABLET 2X A DAY BY MOUTH
     Route: 048
     Dates: start: 20120329

REACTIONS (1)
  - RASH PRURITIC [None]
